FAERS Safety Report 12930062 (Version 1)
Quarter: 2016Q4

REPORT INFORMATION
  Report Type: Spontaneous
  Country: US (occurrence: US)
  Receive Date: 20161110
  Receipt Date: 20161110
  Transmission Date: 20170207
  Serious: No
  Sender: FDA-Public Use
  Company Number: US-PFIZER INC-2016517889

PATIENT
  Age: 73 Year
  Sex: Male

DRUGS (5)
  1. SUTENT [Suspect]
     Active Substance: SUNITINIB MALATE
     Dosage: 37.5 MG, CYCLIC (ALTERNATING WITH 25 MG)
  2. SUTENT [Suspect]
     Active Substance: SUNITINIB MALATE
     Dosage: 12.5 MG, CYCLIC
  3. SUTENT [Suspect]
     Active Substance: SUNITINIB MALATE
     Dosage: 25 MG, CYCLIC
  4. SUTENT [Suspect]
     Active Substance: SUNITINIB MALATE
     Dosage: 37.5 MG, CYCLIC
  5. SUTENT [Suspect]
     Active Substance: SUNITINIB MALATE
     Dosage: 37.7 MG, CYCLIC (DAILY)
     Dates: start: 20140310

REACTIONS (3)
  - Neoplasm progression [Unknown]
  - Fatigue [Unknown]
  - Asthenia [Unknown]
